FAERS Safety Report 25883231 (Version 1)
Quarter: 2025Q4

REPORT INFORMATION
  Report Type: Spontaneous
  Country: CA (occurrence: CA)
  Receive Date: 20251006
  Receipt Date: 20251006
  Transmission Date: 20260118
  Serious: Yes (Other)
  Sender: ASTELLAS
  Company Number: CA-PFIZER INC-PV202500031529

PATIENT
  Age: 83 Year
  Sex: Male
  Weight: 66 kg

DRUGS (13)
  1. PADCEV [Suspect]
     Active Substance: ENFORTUMAB VEDOTIN-EJFV
     Indication: Transitional cell carcinoma metastatic
     Dosage: 66 MG, CYCLIC EVERY 21 DAYS?POWDER FOR SOLUTION FOR INFUSION
     Route: 042
     Dates: start: 20250304
  2. PADCEV [Suspect]
     Active Substance: ENFORTUMAB VEDOTIN-EJFV
     Dosage: 66 MG, CYCLIC EVERY 21 DAYS?POWDER FOR SOLUTION FOR INFUSION
     Route: 042
     Dates: start: 20250311, end: 20250311
  3. PADCEV [Suspect]
     Active Substance: ENFORTUMAB VEDOTIN-EJFV
     Dosage: 66 MG, CYCLIC D1 AND D8?POWDER FOR SOLUTION FOR INFUSION
     Route: 042
     Dates: start: 20250409
  4. PADCEV [Suspect]
     Active Substance: ENFORTUMAB VEDOTIN-EJFV
     Dosage: 66 MG, CYCLIC D1 AND D8?POWDER FOR SOLUTION FOR INFUSION
     Route: 042
     Dates: start: 20250416
  5. PADCEV [Suspect]
     Active Substance: ENFORTUMAB VEDOTIN-EJFV
     Dosage: 200 MG, CYCLIC EVERY 2-3 WEEKS (CYCLE: 4, INFUSION#: 5)?POWDER FOR SOLUTION FOR INFUSION
     Route: 042
     Dates: start: 20250501
  6. PADCEV [Suspect]
     Active Substance: ENFORTUMAB VEDOTIN-EJFV
     Dosage: 66 MG, CYCLIC DAY 1 AND 8?POWDER FOR SOLUTION FOR INFUSION
     Route: 042
     Dates: start: 20250508
  7. PADCEV [Suspect]
     Active Substance: ENFORTUMAB VEDOTIN-EJFV
     Dosage: 66 MG, CYCLIC WEEKLY OR EVERY 2 WEEKS (CYCLE 4, INFUSION #7)?POWDER FOR SOLUTION FOR INFUSION
     Route: 042
     Dates: start: 20250529
  8. PADCEV [Suspect]
     Active Substance: ENFORTUMAB VEDOTIN-EJFV
     Dosage: 66 MG, CYCLIC DAY 1 AND DAY 8 OF 21-DAY CYCLE?POWDER FOR SOLUTION FOR INFUSION
     Route: 042
     Dates: start: 20250605
  9. PADCEV [Suspect]
     Active Substance: ENFORTUMAB VEDOTIN-EJFV
     Dosage: 65 MG, CYCLIC DAY 1 AND DAY 8 OF 21-DAY CYCLE?POWDER FOR SOLUTION FOR INFUSION
     Route: 042
     Dates: start: 20250723
  10. PADCEV [Suspect]
     Active Substance: ENFORTUMAB VEDOTIN-EJFV
     Dosage: 65 MG, CYCLIC DAY 1 AND DAY 8 OF 21-DAY CYCLE?POWDER FOR SOLUTION FOR INFUSION
     Route: 042
     Dates: start: 20250730
  11. KEYTRUDA [Concomitant]
     Active Substance: PEMBROLIZUMAB
     Indication: Product used for unknown indication
     Dosage: UNK
     Route: 065
  12. SODIUM CHLORIDE [Concomitant]
     Active Substance: SODIUM CHLORIDE
     Indication: Product used for unknown indication
     Dosage: UNK
     Route: 065
     Dates: start: 20250501
  13. SODIUM CHLORIDE [Concomitant]
     Active Substance: SODIUM CHLORIDE
     Dosage: UNK
     Route: 065
     Dates: start: 20250311

REACTIONS (17)
  - Neuropathy peripheral [Unknown]
  - Transitional cell carcinoma metastatic [Unknown]
  - Malignant neoplasm progression [Unknown]
  - Eye swelling [Recovering/Resolving]
  - Lacrimation increased [Recovering/Resolving]
  - Lymphadenopathy [Unknown]
  - Dacryostenosis acquired [Unknown]
  - Heart rate decreased [Recovered/Resolved]
  - Blood pressure systolic increased [Unknown]
  - Oxygen saturation decreased [Not Recovered/Not Resolved]
  - Heart rate decreased [Unknown]
  - Poor venous access [Unknown]
  - Fatigue [Unknown]
  - Paraesthesia [Unknown]
  - Palmar-plantar erythrodysaesthesia syndrome [Unknown]
  - Diarrhoea [Recovering/Resolving]
  - Off label use [Unknown]

NARRATIVE: CASE EVENT DATE: 20250101
